FAERS Safety Report 11133808 (Version 1)
Quarter: 2015Q2

REPORT INFORMATION
  Report Type: Spontaneous
  Country: US (occurrence: US)
  Receive Date: 20150524
  Receipt Date: 20150524
  Transmission Date: 20150821
  Serious: No
  Sender: FDA-Public Use
  Company Number: US-JNJFOC-20150213315

PATIENT
  Age: 62 Year
  Sex: Female
  Weight: 79.38 kg

DRUGS (3)
  1. METOPROLOL [Concomitant]
     Active Substance: METOPROLOL
     Indication: HYPERTENSION
     Route: 048
     Dates: start: 201501
  2. INVOKANA [Suspect]
     Active Substance: CANAGLIFLOZIN
     Indication: GLUCOSE TOLERANCE IMPAIRED
     Route: 048
     Dates: start: 201501
  3. VALSARTAN. [Concomitant]
     Active Substance: VALSARTAN
     Indication: HYPERTENSION
     Route: 048

REACTIONS (5)
  - Vulvovaginal pruritus [Not Recovered/Not Resolved]
  - Pollakiuria [Not Recovered/Not Resolved]
  - Vulvovaginal dryness [Not Recovered/Not Resolved]
  - Weight decreased [Not Recovered/Not Resolved]
  - Product use issue [Unknown]

NARRATIVE: CASE EVENT DATE: 201501
